FAERS Safety Report 16892623 (Version 2)
Quarter: 2019Q4

REPORT INFORMATION
  Report Type: Report from Study
  Country: US (occurrence: US)
  Receive Date: 20191007
  Receipt Date: 20191014
  Transmission Date: 20200122
  Serious: No
  Sender: FDA-Public Use
  Company Number: US-ROCHE-2369128

PATIENT
  Age: 51 Year
  Sex: Male
  Weight: 109.7 kg

DRUGS (2)
  1. ASPIRIN [ACETYLSALICYLIC ACID] [Concomitant]
     Active Substance: ASPIRIN
     Route: 048
     Dates: start: 20190721
  2. BLINDED RO5285119 (V1A RECEPTOR ANTAGONIST) [Suspect]
     Active Substance: BALOVAPTAN
     Indication: AUTISM SPECTRUM DISORDER
     Dosage: DATE OF MOST RECENT DOSE OF STUDY DRUG PRIOR TO ADVERSE EVENT ONSET: 30/JUL/2019
     Route: 048
     Dates: start: 20190115

REACTIONS (1)
  - Polyneuropathy [Not Recovered/Not Resolved]

NARRATIVE: CASE EVENT DATE: 20190730
